FAERS Safety Report 6932390-X (Version None)
Quarter: 2010Q3

REPORT INFORMATION
  Report Type: 
  Country: None (occurrence: None)
  Receive Date: 20100819
  Receipt Date: 20100730
  Transmission Date: 20110219
  Serious: No
  Sender: FDA-Public Use
  Company Number: US-BAYER-201029717NA

PATIENT
  Age: 37 Year
  Sex: Female

DRUGS (1)
  1. MIRENA [Suspect]
     Indication: PRODUCT USED FOR UNKNOWN INDICATION
     Dosage: FREQUENCY CONTINUOUS
     Route: 015
     Dates: start: 20100714, end: 20100730

REACTIONS (1)
  - PREGNANCY WITH CONTRACEPTIVE DEVICE [None]
